FAERS Safety Report 5396195-6 (Version None)
Quarter: 2007Q3

REPORT INFORMATION
  Report Type: 
  Country: None (occurrence: None)
  Receive Date: 20070725
  Receipt Date: 20070720
  Transmission Date: 20080115
  Serious: Yes (Other)
  Sender: FDA-Public Use
  Company Number: PHEH2007US10187

PATIENT
  Age: 52 Year
  Sex: Female

DRUGS (4)
  1. COMBIPATCH [Suspect]
     Indication: MENOPAUSAL SYMPTOMS
     Dosage: 0.5 /0.14 MG/DAY, TIWCE WEEKLY
     Route: 062
  2. PREMPRO [Suspect]
  3. PREMARIN [Suspect]
     Indication: MENOPAUSAL SYMPTOMS
     Dosage: 0.625 MG/2.5 MG, UNK
     Route: 048
     Dates: start: 19960301, end: 19961201
  4. PROVERA [Suspect]
     Indication: MENOPAUSAL SYMPTOMS
     Route: 048
     Dates: start: 19960301, end: 19961101

REACTIONS (12)
  - ATROPHIC VULVOVAGINITIS [None]
  - BREAST CANCER IN SITU [None]
  - CERVICAL DYSPLASIA [None]
  - CERVICITIS [None]
  - CLUSTER HEADACHE [None]
  - HOT FLUSH [None]
  - INSOMNIA [None]
  - MALIGNANT BREAST LUMP REMOVAL [None]
  - MASTECTOMY [None]
  - OSTEOPENIA [None]
  - SMEAR CERVIX ABNORMAL [None]
  - VULVOVAGINAL DRYNESS [None]
